FAERS Safety Report 4725083-0 (Version None)
Quarter: 2005Q3

REPORT INFORMATION
  Report Type: 
  Country: None (occurrence: None)
  Receive Date: 20050725
  Receipt Date: 20050718
  Transmission Date: 20060218
  Serious: Yes (Death)
  Sender: FDA-Public Use
  Company Number: 05-07-1249

PATIENT
  Age: 41 Year
  Sex: Male

DRUGS (1)
  1. CLOZAPINE [Suspect]
     Dosage: 600-700MG QD ORAL
     Route: 048
     Dates: start: 20000901, end: 20050601

REACTIONS (1)
  - NEOPLASM MALIGNANT [None]
